FAERS Safety Report 10239782 (Version 2)
Quarter: 2014Q3

REPORT INFORMATION
  Report Type: Spontaneous
  Country: US (occurrence: US)
  Receive Date: 20140616
  Receipt Date: 20140722
  Transmission Date: 20150326
  Serious: Yes (Other)
  Sender: FDA-Public Use
  Company Number: US-FRI-1000068007

PATIENT
  Age: 12 Year
  Sex: Female

DRUGS (2)
  1. SUPPLEMENTS (NOS) [Concomitant]
  2. ARMOUR THYROID [Suspect]
     Active Substance: THYROID, PORCINE\THYROID, UNSPECIFIED
     Indication: HYPOTHYROIDISM
     Dosage: 60MG
     Route: 048
     Dates: start: 2010

REACTIONS (2)
  - Bacterial infection [Not Recovered/Not Resolved]
  - Tic [Not Recovered/Not Resolved]
